FAERS Safety Report 6216631-2 (Version None)
Quarter: 2009Q2

REPORT INFORMATION
  Report Type: 
  Country: None (occurrence: None)
  Receive Date: 20090603
  Receipt Date: 20090603
  Transmission Date: 20091009
  Serious: Yes (Other)
  Sender: FDA-Public Use
  Company Number: None

PATIENT
  Age: 26 Year
  Sex: Male
  Weight: 75.2971 kg

DRUGS (1)
  1. ZYRTEC [Suspect]
     Indication: MULTIPLE ALLERGIES
     Dosage: 10MG PER DAY PO
     Route: 048
     Dates: start: 20090507, end: 20090529

REACTIONS (3)
  - MECHANICAL URTICARIA [None]
  - URTICARIA [None]
  - WITHDRAWAL SYNDROME [None]
